FAERS Safety Report 4943412-X (Version None)
Quarter: 2006Q1

REPORT INFORMATION
  Report Type: 
  Country: None (occurrence: None)
  Receive Date: 20060309
  Receipt Date: 20060228
  Transmission Date: 20060701
  Serious: Yes (Other)
  Sender: FDA-Public Use
  Company Number: 2006028491

PATIENT

DRUGS (2)
  1. UNISOM [Suspect]
     Indication: SLEEP DISORDER
     Dosage: 1-2 SLEEP GELS DAILY, ORAL
     Route: 048
  2. VALERIAN ROOT (VALERIANA OFFICINALIS ROOT) [Concomitant]

REACTIONS (2)
  - DEPENDENCE [None]
  - SOMNOLENCE [None]
